FAERS Safety Report 5300305-6 (Version None)
Quarter: 2007Q2

REPORT INFORMATION
  Report Type: 
  Country: None (occurrence: None)
  Receive Date: 20070418
  Receipt Date: 20070406
  Transmission Date: 20071010
  Serious: Yes (Hospitalization, Other)
  Sender: FDA-Public Use
  Company Number: PHBS2007TR05490

PATIENT
  Age: 79 Year
  Sex: Female

DRUGS (1)
  1. STALEVO 100 [Suspect]
     Dosage: UNKNOWN
     Route: 048

REACTIONS (2)
  - CEREBROVASCULAR DISORDER [None]
  - HYPERTENSION [None]
